FAERS Safety Report 9620886 (Version 1)
Quarter: 2013Q4

REPORT INFORMATION
  Report Type: Report from Study
  Country: LB (occurrence: LB)
  Receive Date: 20131015
  Receipt Date: 20131015
  Transmission Date: 20140711
  Serious: Yes (Death)
  Sender: FDA-Public Use
  Company Number: LB-SA-2013SA101449

PATIENT
  Age: 59 Year
  Sex: Male

DRUGS (8)
  1. LANTUS SOLOSTAR [Suspect]
     Indication: DIABETES MELLITUS
     Dosage: 10-20U
     Route: 058
     Dates: start: 2012
  2. SOLOSTAR [Concomitant]
     Dates: start: 2012
  3. NOVONORM [Concomitant]
     Indication: DIABETES MELLITUS
     Route: 048
  4. PLAVIX [Concomitant]
     Route: 048
  5. ASPICOT [Concomitant]
     Route: 048
  6. TULIP [Concomitant]
     Route: 048
  7. VASTAREL [Concomitant]
     Route: 048
  8. ISOKET [Concomitant]
     Route: 048

REACTIONS (1)
  - Pulmonary embolism [Fatal]
